FAERS Safety Report 5593897-3 (Version None)
Quarter: 2007Q4

REPORT INFORMATION
  Report Type: 
  Country: None (occurrence: None)
  Receive Date: 20071218
  Receipt Date: 20061205
  Transmission Date: 20080405
  Serious: Yes (Other)
  Sender: FDA-Public Use
  Company Number: 2007001443

PATIENT
  Sex: Female

DRUGS (3)
  1. BEXTRA [Suspect]
  2. CELEBREX [Suspect]
  3. VIOXX [Suspect]

REACTIONS (1)
  - BLOOD PRESSURE INCREASED [None]
